FAERS Safety Report 9457732 (Version 1)
Quarter: 2013Q3

REPORT INFORMATION
  Report Type: Spontaneous
  Country: US (occurrence: None)
  Receive Date: 20130809
  Receipt Date: 20130809
  Transmission Date: 20140515
  Serious: Yes (Hospitalization)
  Sender: FDA-Public Use
  Company Number: 2013-002500

PATIENT
  Age: 43 Year
  Sex: Male

DRUGS (4)
  1. ASACOL (MESALAZINE) MODIFIED-RELEASE TABLET, 400 MG [Suspect]
     Indication: COLITIS ULCERATIVE
     Route: 048
     Dates: start: 1994, end: 201307
  2. DELZICOL [Suspect]
     Indication: COLITIS ULCERATIVE
     Route: 048
     Dates: start: 201307
  3. DICYCLOMINE (DICYCLOVERINE) [Concomitant]
  4. UNSPECIFIED HERBAL [Concomitant]

REACTIONS (3)
  - Intestinal perforation [None]
  - Diverticulitis [None]
  - Abdominal distension [None]
